FAERS Safety Report 17466159 (Version 1)
Quarter: 2020Q1

REPORT INFORMATION
  Report Type: Spontaneous
  Country: US (occurrence: US)
  Receive Date: 20200227
  Receipt Date: 20200227
  Transmission Date: 20200409
  Serious: Yes (Other)
  Sender: FDA-Public Use
  Company Number: US-ALLERGAN-2008701US

PATIENT
  Sex: Female

DRUGS (1)
  1. RESTASIS [Suspect]
     Active Substance: CYCLOSPORINE
     Indication: DRY EYE
     Dosage: 2 GTT, BID
     Route: 047

REACTIONS (10)
  - Macular degeneration [Unknown]
  - Incorrect dose administered [Unknown]
  - Product dropper issue [Unknown]
  - Product use complaint [Unknown]
  - Multiple use of single-use product [Unknown]
  - Product container issue [Unknown]
  - Product storage error [Unknown]
  - Cataract operation [Unknown]
  - Accidental exposure to product [Unknown]
  - Exposure via skin contact [Unknown]

NARRATIVE: CASE EVENT DATE: 2018
